FAERS Safety Report 4868387-3 (Version None)
Quarter: 2005Q4

REPORT INFORMATION
  Report Type: 
  Country: None (occurrence: None)
  Receive Date: 20051229
  Receipt Date: 20051111
  Transmission Date: 20060501
  Serious: Yes (Death)
  Sender: FDA-Public Use
  Company Number: JP-GLAXOSMITHKLINE-B0400245A

PATIENT
  Age: 34 Year
  Sex: Male

DRUGS (12)
  1. ADEFOVIR DIPIVOXIL [Suspect]
     Indication: HEPATIC CIRRHOSIS
     Route: 048
     Dates: start: 20030916, end: 20031008
  2. ZEFIX [Suspect]
     Dosage: 100MG PER DAY
     Route: 048
     Dates: start: 20020220, end: 20031008
  3. URSO [Concomitant]
     Route: 048
  4. LACTULOSE [Concomitant]
     Route: 048
  5. ALTAT [Concomitant]
     Route: 065
  6. KANAMYCIN [Concomitant]
     Route: 048
  7. ALDACTONE [Concomitant]
     Route: 048
  8. ALLOID G [Concomitant]
     Route: 048
  9. BIOFERMIN R [Concomitant]
     Route: 048
  10. AMINOLEBAN [Concomitant]
     Route: 042
  11. LASIX [Concomitant]
     Route: 048
  12. NEO-MINOPHAGEN C [Concomitant]
     Route: 042

REACTIONS (5)
  - EATING DISORDER [None]
  - HEPATIC CIRRHOSIS [None]
  - HEPATIC ENCEPHALOPATHY [None]
  - HEPATIC FAILURE [None]
  - PATHOGEN RESISTANCE [None]
